FAERS Safety Report 19005507 (Version 1)
Quarter: 2021Q1

REPORT INFORMATION
  Report Type: Report from Study
  Country: US (occurrence: US)
  Receive Date: 20210313
  Receipt Date: 20210313
  Transmission Date: 20210420
  Serious: Yes (Death, Other)
  Sender: FDA-Public Use
  Company Number: NVSC2021US056447

PATIENT
  Age: 57 Year
  Sex: Male

DRUGS (1)
  1. KYMRIAH [Suspect]
     Active Substance: TISAGENLECLEUCEL
     Indication: DIFFUSE LARGE B-CELL LYMPHOMA
     Dosage: UNK
     Route: 042
     Dates: start: 20200402

REACTIONS (9)
  - Haemoglobin decreased [Unknown]
  - Lymphocyte count decreased [Unknown]
  - Depressed level of consciousness [Not Recovered/Not Resolved]
  - Malignant neoplasm progression [Fatal]
  - Platelet count decreased [Recovered/Resolved]
  - Confusional state [Not Recovered/Not Resolved]
  - Haematocrit decreased [Unknown]
  - Neurotoxicity [Not Recovered/Not Resolved]
  - Diffuse large B-cell lymphoma [Fatal]
